FAERS Safety Report 26208980 (Version 1)
Quarter: 2025Q4

REPORT INFORMATION
  Report Type: Spontaneous
  Country: US (occurrence: None)
  Receive Date: 20251227
  Receipt Date: 20251227
  Transmission Date: 20260118
  Serious: Yes (Hospitalization)
  Sender: FDA-CTU
  Company Number: None

PATIENT
  Age: 66 Year
  Sex: Female
  Weight: 73 kg

DRUGS (2)
  1. PEMBROLIZUMAB [Suspect]
     Active Substance: PEMBROLIZUMAB
     Dates: end: 20251204
  2. COREG [Concomitant]
     Active Substance: CARVEDILOL

REACTIONS (4)
  - Dizziness postural [None]
  - Blood pressure increased [None]
  - Bradycardia [None]
  - Presyncope [None]

NARRATIVE: CASE EVENT DATE: 20251211
